FAERS Safety Report 9501097 (Version 2)
Quarter: 2013Q3

REPORT INFORMATION
  Report Type: Spontaneous
  Country: US (occurrence: US)
  Receive Date: 20130905
  Receipt Date: 20130905
  Transmission Date: 20140515
  Serious: Yes (Other)
  Sender: FDA-Public Use
  Company Number: US-AMGEN-USASP2013059646

PATIENT
  Age: 64 Year
  Sex: Female
  Weight: 77.91 kg

DRUGS (3)
  1. ENBREL [Suspect]
     Indication: PRODUCT USED FOR UNKNOWN INDICATION
     Dosage: UNK
     Route: 065
     Dates: start: 20120924
  2. TRAMADOL [Concomitant]
     Dosage: UNK
  3. ZOLPIDEM [Concomitant]
     Dosage: UNK

REACTIONS (1)
  - White blood cell count decreased [Unknown]
